FAERS Safety Report 19889087 (Version 1)
Quarter: 2021Q3

REPORT INFORMATION
  Report Type: Spontaneous
  Country: CH (occurrence: CH)
  Receive Date: 20210927
  Receipt Date: 20210927
  Transmission Date: 20211014
  Serious: Yes (Hospitalization)
  Sender: FDA-Public Use
  Company Number: CH-MDD US OPERATIONS-E2B_00003921

PATIENT
  Age: 84 Year
  Sex: Male
  Weight: 62 kg

DRUGS (2)
  1. XADAGO [Suspect]
     Active Substance: SAFINAMIDE MESYLATE
     Indication: PARKINSON^S DISEASE
     Dates: start: 20180601, end: 20180705
  2. XADAGO [Suspect]
     Active Substance: SAFINAMIDE MESYLATE
     Dates: start: 20180706, end: 20200224

REACTIONS (1)
  - Lung disorder [Recovered/Resolved]

NARRATIVE: CASE EVENT DATE: 202002
